FAERS Safety Report 20068245 (Version 2)
Quarter: 2021Q4

REPORT INFORMATION
  Report Type: Spontaneous
  Country: AT (occurrence: AT)
  Receive Date: 20211115
  Receipt Date: 20211125
  Transmission Date: 20220303
  Serious: Yes (Other)
  Sender: FDA-Public Use
  Company Number: AT-AMGEN-AUTSP2021175366

PATIENT
  Age: 59 Year
  Sex: Female
  Weight: 63 kg

DRUGS (5)
  1. PROLIA [Suspect]
     Active Substance: DENOSUMAB
     Indication: Osteoporosis
     Dosage: UNK, Q6MO
     Route: 058
     Dates: start: 201501, end: 202105
  2. MENAQUINONE 6 [Concomitant]
     Active Substance: MENAQUINONE 6
     Dosage: UNK, QD
     Route: 048
     Dates: start: 2020, end: 202111
  3. VITAMIN C [Concomitant]
     Active Substance: ASCORBIC ACID
     Dosage: UNK, QD
     Route: 048
     Dates: start: 2020, end: 202111
  4. CHOLECALCIFEROL [Concomitant]
     Active Substance: CHOLECALCIFEROL
     Dosage: UNK, QD
     Route: 048
     Dates: start: 2020, end: 202111
  5. ZINC [Concomitant]
     Active Substance: ZINC
     Dosage: UNK, QD
     Route: 048
     Dates: start: 2020, end: 202111

REACTIONS (3)
  - Skin necrosis [Not Recovered/Not Resolved]
  - Granuloma skin [Not Recovered/Not Resolved]
  - Sarcoidosis [Not Recovered/Not Resolved]

NARRATIVE: CASE EVENT DATE: 20210501
